FAERS Safety Report 8776474 (Version 2)
Quarter: 2012Q4

REPORT INFORMATION
  Report Type: 
  Country: US (occurrence: US)
  Receive Date: 20120910
  Receipt Date: 20121111
  Transmission Date: 20130627
  Serious: Yes (Other)
  Sender: FDA-Public Use
  Company Number: PHEH2012US017415

PATIENT
  Age: 49 Year
  Sex: Female
  Weight: 64.4 kg

DRUGS (15)
  1. TOBI [Suspect]
     Dosage: 1 ampule via nebulizer twice daily every other month
  2. CEFEPIME [Concomitant]
     Dosage: 1 mg, UNK
  3. SOLU-MEDROL [Concomitant]
     Dosage: 1 mg, UNK
  4. LEVAQUIN [Concomitant]
     Dosage: 250 mg, UNK
  5. ADVAIR DISKUS [Concomitant]
     Dosage: 500/50
  6. PROAIR HFA [Concomitant]
     Dosage: UNK UKN, UNK
  7. PREDNISONE [Concomitant]
     Dosage: 5 mg, UNK
  8. ALBUTEROL [Concomitant]
     Dosage: 0.63 mg/3, UNK
  9. PROZAC [Concomitant]
     Dosage: 10 mg, UNK
  10. XANAX [Concomitant]
     Dosage: 0.25 mg, UNK
  11. ZYPREXA [Concomitant]
     Dosage: 5 mg, UNK
  12. CALCIUM WITH VITAMIN D [Concomitant]
     Dosage: UNK UKN, UNK
  13. RITALIN [Concomitant]
     Dosage: 5 mg, UNK
  14. SIMVASTATIN [Concomitant]
     Dosage: 5 mg, UNK
  15. FISH OIL [Concomitant]
     Dosage: UNK UKN, UNK

REACTIONS (6)
  - Sepsis [Recovered/Resolved]
  - Pneumonia [Recovered/Resolved]
  - Pyrexia [Recovered/Resolved]
  - Sputum discoloured [Recovered/Resolved]
  - Painful respiration [Recovered/Resolved]
  - Dyspnoea [Unknown]
